FAERS Safety Report 5700441-6 (Version None)
Quarter: 2008Q2

REPORT INFORMATION
  Report Type: 
  Country: None (occurrence: None)
  Receive Date: 20080407
  Receipt Date: 20080325
  Transmission Date: 20081010
  Serious: Yes (Hospitalization)
  Sender: FDA-Public Use
  Company Number: 2008AL001883

PATIENT
  Age: 41 Year
  Sex: Male

DRUGS (2)
  1. IBUPROFEN [Suspect]
     Indication: CHILLS
     Dosage: 400 MG;Q6H;PO
     Route: 048
  2. IBUPROFEN [Suspect]
     Indication: MALAISE
     Dosage: 400 MG;Q6H;PO
     Route: 048

REACTIONS (18)
  - ANOREXIA [None]
  - ASCITES [None]
  - CARDIAC MURMUR [None]
  - DEHYDRATION [None]
  - DIARRHOEA [None]
  - HAEMATEMESIS [None]
  - HEADACHE [None]
  - HICCUPS [None]
  - ILEUS [None]
  - INSOMNIA [None]
  - MUSCULAR WEAKNESS [None]
  - MYALGIA [None]
  - OCCULT BLOOD POSITIVE [None]
  - ORAL INTAKE REDUCED [None]
  - PLEURAL FIBROSIS [None]
  - RENAL INJURY [None]
  - RENAL TUBULAR NECROSIS [None]
  - THIRST [None]
